FAERS Safety Report 14967173 (Version 1)
Quarter: 2018Q2

REPORT INFORMATION
  Report Type: Spontaneous
  Country: DE (occurrence: DE)
  Receive Date: 20180604
  Receipt Date: 20180604
  Transmission Date: 20180711
  Serious: Yes (Life-Threatening, Other)
  Sender: FDA-Public Use
  Company Number: DE-CHEPLA-C20170689

PATIENT
  Age: 75 Year
  Sex: Male

DRUGS (4)
  1. DEXAMETHASONE. [Suspect]
     Active Substance: DEXAMETHASONE
     Indication: ACUTE PROMYELOCYTIC LEUKAEMIA DIFFERENTIATION SYNDROME
  2. HYDROXYUREA. [Concomitant]
     Active Substance: HYDROXYUREA
  3. ATO (ARSENIC TRIOXIDE) [Suspect]
     Active Substance: ARSENIC TRIOXIDE
     Indication: ACUTE PROMYELOCYTIC LEUKAEMIA
  4. ATRA [Suspect]
     Active Substance: TRETINOIN
     Indication: ACUTE PROMYELOCYTIC LEUKAEMIA

REACTIONS (6)
  - Acute promyelocytic leukaemia differentiation syndrome [Recovered/Resolved]
  - Electrocardiogram QT prolonged [Unknown]
  - Varicella zoster virus infection [Recovered/Resolved]
  - Infection reactivation [Recovered/Resolved]
  - Hyperleukocytosis [Recovered/Resolved]
  - Blood lactate dehydrogenase increased [Recovered/Resolved]
